FAERS Safety Report 13749184 (Version 3)
Quarter: 2017Q3

REPORT INFORMATION
  Report Type: Spontaneous
  Country: JP (occurrence: JP)
  Receive Date: 20170713
  Receipt Date: 20170831
  Transmission Date: 20171127
  Serious: Yes (Hospitalization)
  Sender: FDA-Public Use
  Company Number: JP-ELI_LILLY_AND_COMPANY-JP201707002751

PATIENT
  Age: 88 Year
  Sex: Male
  Weight: 37 kg

DRUGS (1)
  1. TRULICITY [Suspect]
     Active Substance: DULAGLUTIDE
     Indication: TYPE 2 DIABETES MELLITUS
     Dosage: 0.75 MG, WEEKLY (1/W)
     Route: 058
     Dates: start: 201704

REACTIONS (5)
  - Weight decreased [Recovering/Resolving]
  - Decreased appetite [Unknown]
  - Pneumonia aspiration [Recovering/Resolving]
  - Heat illness [Recovering/Resolving]
  - Dehydration [Recovered/Resolved]

NARRATIVE: CASE EVENT DATE: 2017
